FAERS Safety Report 9783229 (Version 1)
Quarter: 2013Q4

REPORT INFORMATION
  Report Type: Spontaneous
  Country: US (occurrence: None)
  Receive Date: 20131223
  Receipt Date: 20131223
  Transmission Date: 20140711
  Serious: Yes (Other)
  Sender: FDA-Public Use
  Company Number: EUS-2012-00060

PATIENT
  Age: 21 Year
  Sex: Female

DRUGS (5)
  1. ERWINASE [Suspect]
     Indication: ACUTE LYMPHOCYTIC LEUKAEMIA
     Dosage: (42500 IU), INTRAMUSCULAR
     Dates: start: 20091218, end: 20100319
  2. DEPO-PROVERA [Suspect]
     Dates: start: 20100101, end: 20100319
  3. DEXAMETHASONE [Concomitant]
  4. PREDNISONE [Concomitant]
  5. DIPHENHYDRAMINE [Concomitant]

REACTIONS (4)
  - Hypersensitivity [None]
  - Hyperglycaemia [None]
  - Renal failure [None]
  - Fungal infection [None]
